FAERS Safety Report 18526851 (Version 1)
Quarter: 2020Q4

REPORT INFORMATION
  Report Type: Spontaneous
  Country: US (occurrence: US)
  Receive Date: 20201120
  Receipt Date: 20201120
  Transmission Date: 20210114
  Serious: No
  Sender: FDA-Public Use
  Company Number: US-TAKEDA-2020TUS047774

PATIENT
  Age: 65 Year
  Sex: Female
  Weight: 150 kg

DRUGS (35)
  1. AZITHROMYCIN ANHYDROUS. [Concomitant]
     Active Substance: AZITHROMYCIN ANHYDROUS
     Route: 065
  2. VITAMIN D3 [Concomitant]
     Active Substance: CHOLECALCIFEROL
     Route: 065
  3. SELENIUM SULFIDE. [Concomitant]
     Active Substance: SELENIUM SULFIDE
     Route: 065
  4. MAGNESIUM CITRATE. [Concomitant]
     Active Substance: MAGNESIUM CITRATE
     Route: 065
  5. ALLEGRA [Concomitant]
     Active Substance: FEXOFENADINE HYDROCHLORIDE
     Route: 065
  6. KLONOPIN [Concomitant]
     Active Substance: CLONAZEPAM
     Route: 065
  7. NASONEX [Concomitant]
     Active Substance: MOMETASONE FUROATE
     Route: 065
  8. FLONASE [MOMETASONE FUROATE] [Concomitant]
     Active Substance: MOMETASONE FUROATE
     Route: 065
  9. NEXIUM I.V. [Concomitant]
     Active Substance: ESOMEPRAZOLE SODIUM
     Route: 065
  10. ESTRIOL [Concomitant]
     Active Substance: ESTRIOL
     Route: 065
  11. DIPHENHYDRAMINE. [Concomitant]
     Active Substance: DIPHENHYDRAMINE
     Route: 065
  12. TRAMADOL. [Concomitant]
     Active Substance: TRAMADOL
     Route: 065
  13. ANTIVERT [Concomitant]
     Active Substance: MECLIZINE HYDROCHLORIDE
     Route: 065
  14. TEGRETOL [Concomitant]
     Active Substance: CARBAMAZEPINE
     Route: 065
  15. METAMUCIL [Concomitant]
     Active Substance: PLANTAGO SEED
     Route: 065
  16. VITAMIN B12 [Concomitant]
     Active Substance: CYANOCOBALAMIN
     Route: 065
  17. PROVIGIL [Concomitant]
     Active Substance: MODAFINIL
     Route: 065
  18. LMX4 [Concomitant]
     Active Substance: LIDOCAINE
     Route: 065
  19. CLOBETASOL PROPIONATE. [Concomitant]
     Active Substance: CLOBETASOL PROPIONATE
     Route: 065
  20. GAMMAGARD LIQUID [Suspect]
     Active Substance: HUMAN IMMUNOGLOBULIN G
     Indication: IMMUNODEFICIENCY COMMON VARIABLE
     Dosage: 7.5 GRAM, 1/WEEK
     Route: 058
     Dates: start: 20160830
  21. MAXALT [Concomitant]
     Active Substance: RIZATRIPTAN BENZOATE
     Route: 065
  22. FLORASTOR [LACTOBACILLUS ACIDOPHILUS] [Concomitant]
     Route: 065
  23. GLUCOSAMINE [Concomitant]
     Active Substance: GLUCOSAMINE
     Route: 065
  24. LEVSIN [Concomitant]
     Active Substance: HYOSCYAMINE SULFATE
     Route: 065
  25. MODAFINIL. [Concomitant]
     Active Substance: MODAFINIL
     Route: 065
  26. TRISTART DHA [Concomitant]
     Active Substance: .ALPHA.-TOCOPHEROL ACETATE, D-\ASCORBIC ACID\CHOLECALCIFEROL\CYANOCOBALAMIN\DOCONEXENT\FOLIC ACID\ICOSAPENT\IRON PENTACARBONYL\LEVOMEFOLATE MAGNESIUM\MAGNESIUM OXIDE\NIACIN\POTASSIUM IODIDE\PYRIDOXINE HYDROCHLORIDE\RIBOFLAVIN\THIAMINE HYDROCHLORIDE
     Route: 065
  27. ACETAMINOPHEN. [Concomitant]
     Active Substance: ACETAMINOPHEN
     Route: 065
  28. EPINEPHRINE. [Concomitant]
     Active Substance: EPINEPHRINE
     Route: 065
  29. FLUOCINONIDE-E [Concomitant]
     Active Substance: FLUOCINONIDE
     Route: 065
  30. DULOXETINE. [Concomitant]
     Active Substance: DULOXETINE
     Route: 065
  31. LIDO [Concomitant]
     Route: 065
  32. ARMOUR THYROID [Concomitant]
     Active Substance: THYROID, PORCINE
     Route: 065
  33. VITAMINS NOS [Concomitant]
     Active Substance: VITAMINS
     Route: 065
  34. TOPAMAX [Concomitant]
     Active Substance: TOPIRAMATE
     Route: 065
  35. MECLIZINE [Concomitant]
     Active Substance: MECLIZINE HYDROCHLORIDE
     Route: 065

REACTIONS (2)
  - Vomiting [Unknown]
  - Abdominal pain upper [Unknown]

NARRATIVE: CASE EVENT DATE: 20201003
